FAERS Safety Report 23762821 (Version 1)
Quarter: 2024Q2

REPORT INFORMATION
  Report Type: Spontaneous
  Country: US (occurrence: US)
  Receive Date: 20240419
  Receipt Date: 20240419
  Transmission Date: 20240716
  Serious: No
  Sender: FDA-Public Use
  Company Number: US-Ascent Pharmaceuticals, Inc.-2155785

PATIENT
  Age: 60 Year
  Sex: Male
  Weight: 65.909 kg

DRUGS (1)
  1. DUTASTERIDE [Suspect]
     Active Substance: DUTASTERIDE
     Indication: Prostatomegaly
     Route: 048
     Dates: end: 20240308

REACTIONS (5)
  - Ejaculation disorder [Not Recovered/Not Resolved]
  - Drug ineffective [Unknown]
  - Unevaluable event [Not Recovered/Not Resolved]
  - Sexual life impairment [Not Recovered/Not Resolved]
  - Anorgasmia [Not Recovered/Not Resolved]
